FAERS Safety Report 10625985 (Version 1)
Quarter: 2014Q4

REPORT INFORMATION
  Report Type: Spontaneous
  Country: US (occurrence: None)
  Receive Date: 20141121
  Receipt Date: 20141121
  Transmission Date: 20150529
  Serious: No
  Sender: FDA-Public Use
  Company Number: 163-10004-14083622

PATIENT
  Age: 61 Year
  Sex: Female
  Weight: 68.95 kg

DRUGS (10)
  1. LIPITOR [Concomitant]
     Active Substance: ATORVASTATIN CALCIUM
  2. NAPROXEN. [Concomitant]
     Active Substance: NAPROXEN
  3. OTEZLA [Suspect]
     Active Substance: APREMILAST
     Indication: PSORIATIC ARTHROPATHY
     Route: 048
     Dates: start: 20140808
  4. ENBREL [Concomitant]
     Active Substance: ETANERCEPT
  5. VENLAFAXINE [Concomitant]
     Active Substance: VENLAFAXINE HYDROCHLORIDE
  6. FAMOTIDINE. [Concomitant]
     Active Substance: FAMOTIDINE
  7. NEXIUM [Concomitant]
     Active Substance: ESOMEPRAZOLE MAGNESIUM
  8. ALEVE (NAPROXEN SODIUM) [Concomitant]
  9. MELOXICAM. [Concomitant]
     Active Substance: MELOXICAM
  10. QUETIAPINE FUMARATE. [Concomitant]
     Active Substance: QUETIAPINE FUMARATE

REACTIONS (13)
  - Feeling abnormal [None]
  - Nausea [None]
  - Eructation [None]
  - Diarrhoea [None]
  - Vertigo [None]
  - Cold sweat [None]
  - Photosensitivity reaction [None]
  - Headache [None]
  - Frequent bowel movements [None]
  - Hyperhidrosis [None]
  - Dizziness [None]
  - Asthenia [None]
  - Abdominal pain [None]

NARRATIVE: CASE EVENT DATE: 20140812
